FAERS Safety Report 7118995-4 (Version None)
Quarter: 2010Q4

REPORT INFORMATION
  Report Type: 
  Country: None (occurrence: None)
  Receive Date: 20101123
  Receipt Date: 20101116
  Transmission Date: 20110411
  Serious: Yes (Hospitalization)
  Sender: FDA-Public Use
  Company Number: A0793610A

PATIENT
  Age: 33 Year
  Sex: Female

DRUGS (1)
  1. AVANDIA [Suspect]
     Dosage: 4MG UNKNOWN
     Route: 048
     Dates: start: 20020101, end: 20040101

REACTIONS (7)
  - CARDIAC FAILURE CONGESTIVE [None]
  - DEPRESSION [None]
  - DYSPNOEA [None]
  - FEAR [None]
  - INJURY [None]
  - OEDEMA [None]
  - STRESS [None]
